FAERS Safety Report 8893153 (Version 5)
Quarter: 2013Q1

REPORT INFORMATION
  Report Type: Spontaneous
  Country: US (occurrence: None)
  Receive Date: 20121101
  Receipt Date: 20130201
  Transmission Date: 20140127
  Serious: Yes (Other)
  Sender: FDA-Public Use
  Company Number: VAL_00943_2012

PATIENT
  Sex: Female
  Weight: 56.7 kg

DRUGS (7)
  1. METOPROLOL [Suspect]
     Indication: PRODUCT USED FOR UNKNOWN INDICATION
     Dosage: (DF)
  2. GILENYA [Suspect]
     Indication: MULTIPLE SCLEROSIS
     Route: 048
     Dates: start: 20110331
  3. VITAMIN D3 [Concomitant]
  4. VITAMIN B12 [Concomitant]
  5. MELOXICAM [Concomitant]
  6. ACIDOPHILUS [Concomitant]
  7. CHLORTHALIDONE [Concomitant]

REACTIONS (13)
  - Decreased appetite [None]
  - Weight decreased [None]
  - Pain [None]
  - Muscle fatigue [None]
  - Blood pressure increased [None]
  - Fall [None]
  - Injury [None]
  - Laceration [None]
  - Herpes zoster [None]
  - Drug interaction [None]
  - Nausea [None]
  - Flushing [None]
  - Potentiating drug interaction [None]
